FAERS Safety Report 5339486-7 (Version None)
Quarter: 2007Q2

REPORT INFORMATION
  Report Type: 
  Country: None (occurrence: None)
  Receive Date: 20070404
  Receipt Date: 20060406
  Transmission Date: 20071010
  Serious: Yes (Other)
  Sender: FDA-Public Use
  Company Number: 2006047637

PATIENT
  Age: 30 Year
  Sex: Male

DRUGS (1)
  1. GEODON [Suspect]
     Indication: PSYCHOTIC DISORDER
     Dosage: 160 MG (80 MG, 2 IN 1 D) UNKNOWN

REACTIONS (1)
  - DYSTONIA [None]
